FAERS Safety Report 5264863-2 (Version None)
Quarter: 2007Q1

REPORT INFORMATION
  Report Type: 
  Country: None (occurrence: None)
  Receive Date: 20070314
  Receipt Date: 20070308
  Transmission Date: 20070707
  Serious: Yes (Death)
  Sender: FDA-Public Use
  Company Number: 2007AP00620

PATIENT
  Age: 26418 Day
  Sex: Female
  Weight: 41 kg

DRUGS (9)
  1. IRESSA [Suspect]
     Indication: LUNG ADENOCARCINOMA STAGE IV
     Route: 048
     Dates: start: 20070107, end: 20070119
  2. CARBOPLATIN [Concomitant]
     Dosage: 3 COURSES
     Dates: start: 20060902, end: 20061201
  3. PACLITAXEL [Concomitant]
     Dosage: 3 COURSES
     Dates: start: 20060902, end: 20061201
  4. RADIOTHERAPY [Concomitant]
     Indication: METASTASES TO SPINE
     Dosage: 39 GY
     Dates: start: 20061122, end: 20061227
  5. PICIBANIL [Concomitant]
     Dates: start: 20070116
  6. MINOCYCLINE HYDROCHLORIDE [Concomitant]
     Dates: start: 20070116
  7. MYSLEE [Concomitant]
     Route: 048
     Dates: start: 20061201, end: 20070119
  8. ALLOID G [Concomitant]
     Route: 048
     Dates: start: 20061206, end: 20070119
  9. LOXONIN [Concomitant]
     Route: 048
     Dates: start: 20070110, end: 20070119

REACTIONS (1)
  - LUNG DISORDER [None]
